FAERS Safety Report 8457314-8 (Version None)
Quarter: 2012Q2

REPORT INFORMATION
  Report Type: 
  Country: None (occurrence: None)
  Receive Date: 20120621
  Receipt Date: 20120614
  Transmission Date: 20120825
  Serious: Yes (Disabling, Other)
  Sender: FDA-Public Use
  Company Number: US-PFIZER INC-2012129929

PATIENT
  Sex: Male

DRUGS (5)
  1. PROTONIX [Suspect]
     Dosage: UNK
  2. LORAZEPAM [Concomitant]
     Dosage: 1 MG, 2X/DAY
  3. PRISTIQ [Suspect]
     Indication: MAJOR DEPRESSION
     Dosage: UNK, 2X/DAY (STRENGTH 100)
  4. PRISTIQ [Suspect]
     Indication: POST-TRAUMATIC STRESS DISORDER
  5. NITROGLYCERIN [Concomitant]
     Dosage: UNK (30 QHS)

REACTIONS (1)
  - ARTHROPATHY [None]
